FAERS Safety Report 10027758 (Version 1)
Quarter: 2014Q1

REPORT INFORMATION
  Report Type: Spontaneous
  Country: JP (occurrence: None)
  Receive Date: 20140319
  Receipt Date: 20140319
  Transmission Date: 20141002
  Serious: Yes (Death, Other)
  Sender: FDA-Public Use
  Company Number: AXC-2014-000177

PATIENT
  Age: 68 Year
  Sex: Female

DRUGS (5)
  1. URSODEOXYCHOLIC ACID [Suspect]
     Indication: PROPHYLAXIS
     Route: 048
  2. GLYCYRRHIZINIC ACID [Concomitant]
  3. ENTECAVIR (ENTECAVIR) [Concomitant]
  4. INTERFERON (INTERFERON) INJECTION [Concomitant]
  5. PREDNISOLON / 00016201/ (PREDNISOLONE) INJECTION [Concomitant]

REACTIONS (1)
  - Hepatic failure [None]
